FAERS Safety Report 6860207-0 (Version None)
Quarter: 2010Q3

REPORT INFORMATION
  Report Type: 
  Country: None (occurrence: None)
  Receive Date: 20100720
  Receipt Date: 20100706
  Transmission Date: 20110219
  Serious: Yes (Life-Threatening)
  Sender: FDA-Public Use
  Company Number: CA-SANOFI-AVENTIS-2010SA039610

PATIENT
  Sex: Female
  Weight: 96.2 kg

DRUGS (5)
  1. FUROSEMIDE [Suspect]
     Route: 048
     Dates: start: 20081201
  2. OXALIPLATIN [Suspect]
     Route: 065
  3. FOLINIC ACID [Suspect]
     Route: 065
  4. FLUOROURACIL [Suspect]
     Route: 065
  5. BEVACIZUMAB [Suspect]
     Route: 065

REACTIONS (1)
  - CARDIAC ARREST [None]
